FAERS Safety Report 7085565-6 (Version None)
Quarter: 2010Q4

REPORT INFORMATION
  Report Type: 
  Country: None (occurrence: None)
  Receive Date: 20101105
  Receipt Date: 20101027
  Transmission Date: 20110411
  Serious: Yes (Other)
  Sender: FDA-Public Use
  Company Number: JP-ASTRAZENECA-2010SE51420

PATIENT
  Age: 29 Year
  Sex: Female
  Weight: 52 kg

DRUGS (2)
  1. CARBOCAIN INJ [Suspect]
     Indication: EPIDURAL ANAESTHESIA
     Route: 008
  2. DEXAMETHASONE [Concomitant]
     Route: 008

REACTIONS (2)
  - ANAPHYLACTIC REACTION [None]
  - CARDIOMYOPATHY [None]
